FAERS Safety Report 7888946-3 (Version None)
Quarter: 2011Q4

REPORT INFORMATION
  Report Type: 
  Country: None (occurrence: None)
  Receive Date: 20111103
  Receipt Date: 20111027
  Transmission Date: 20120403
  Serious: Yes (Other)
  Sender: FDA-Public Use
  Company Number: GB-NAPPMUNDI-GBR-2011-0009010

PATIENT
  Age: 32 Year
  Sex: Male

DRUGS (6)
  1. ACETAMINOPHEN [Concomitant]
     Indication: PAIN
     Dosage: 1 G, QID
     Route: 048
     Dates: start: 20110926
  2. MORPHINE SULFATE [Concomitant]
     Indication: PAIN
     Dosage: 6 MG, DAILY
     Route: 042
     Dates: start: 20110927, end: 20110927
  3. IBUPROFEN [Concomitant]
     Indication: PAIN
     Dosage: 400 MG, QID
     Route: 048
     Dates: start: 20110926, end: 20111001
  4. DIHYDROCODEINE BITARTRATE [Concomitant]
     Indication: PAIN
     Dosage: 60 MG, QID
     Route: 048
     Dates: start: 20110926, end: 20110927
  5. OXYCONTIN [Suspect]
     Indication: PAIN
     Dosage: UNK
     Route: 048
     Dates: start: 20110927, end: 20111004
  6. OXYCODONE HCL [Suspect]
     Indication: PAIN
     Dosage: UNK
     Route: 048
     Dates: start: 20110927, end: 20111004

REACTIONS (3)
  - ERYTHEMA [None]
  - RASH GENERALISED [None]
  - RASH PRURITIC [None]
